FAERS Safety Report 9697268 (Version 1)
Quarter: 2013Q4

REPORT INFORMATION
  Report Type: Spontaneous
  Country: US (occurrence: None)
  Receive Date: 20131119
  Receipt Date: 20131119
  Transmission Date: 20140711
  Serious: Yes (Hospitalization, Other)
  Sender: FDA-Public Use
  Company Number: None

PATIENT
  Age: 16 Year
  Sex: Female
  Weight: 61.24 kg

DRUGS (1)
  1. TRIAZOLAM [Suspect]
     Indication: ANXIETY
     Dosage: 2 PILLS-   .25MG EACH  --  TAKEN BY MOUTH
     Route: 048
     Dates: start: 20131108, end: 20131108

REACTIONS (16)
  - Drug ineffective [None]
  - Anxiety [None]
  - Agitation [None]
  - Feeling drunk [None]
  - Balance disorder [None]
  - Suicidal behaviour [None]
  - Homicidal ideation [None]
  - Self-injurious ideation [None]
  - Thinking abnormal [None]
  - Anger [None]
  - Psychomotor hyperactivity [None]
  - Respiratory rate increased [None]
  - Hyperventilation [None]
  - Fatigue [None]
  - Lethargy [None]
  - Amnesia [None]
